FAERS Safety Report 8336241-0 (Version None)
Quarter: 2012Q2

REPORT INFORMATION
  Report Type: 
  Country: None (occurrence: None)
  Receive Date: 20120504
  Receipt Date: 20120426
  Transmission Date: 20120825
  Serious: Yes (Hospitalization, Other)
  Sender: FDA-Public Use
  Company Number: US-UCBSA-056347

PATIENT
  Age: 58 Year
  Sex: Female
  Weight: 117 kg

DRUGS (7)
  1. HYDROCHLOROTHIAZIDE [Concomitant]
     Indication: HYPERTENSION
     Route: 048
  2. CATAPRES [Concomitant]
     Indication: HYPERTENSION
     Route: 048
  3. KEPPRA [Suspect]
     Route: 048
     Dates: start: 20110401
  4. DILANTIN [Concomitant]
     Indication: CONVULSION
     Route: 048
  5. VIMPAT [Suspect]
     Indication: CONVULSION
     Route: 048
     Dates: start: 20120321, end: 20120421
  6. METOPROLOL TARTRATE [Concomitant]
     Indication: HYPERTENSION
     Route: 048
  7. LISINOPRIL [Concomitant]
     Indication: HYPERTENSION
     Route: 048

REACTIONS (2)
  - DRUG LEVEL DECREASED [None]
  - CONVULSION [None]
